FAERS Safety Report 9787063 (Version 1)
Quarter: 2013Q4

REPORT INFORMATION
  Report Type: Report from Study
  Country: CN (occurrence: CN)
  Receive Date: 20131227
  Receipt Date: 20131227
  Transmission Date: 20140711
  Serious: Yes (Other)
  Sender: FDA-Public Use
  Company Number: CN-ROCHE-1323672

PATIENT
  Sex: 0

DRUGS (4)
  1. CAPECITABINE [Suspect]
     Indication: BREAST CANCER METASTATIC
     Route: 048
  2. VINORELBINE [Suspect]
     Indication: BREAST CANCER METASTATIC
     Route: 041
  3. GEMCITABINE [Suspect]
     Indication: BREAST CANCER METASTATIC
     Route: 041
  4. DOCETAXEL [Suspect]
     Indication: BREAST CANCER METASTATIC
     Route: 041

REACTIONS (5)
  - Leukopenia [Unknown]
  - Platelet count decreased [Unknown]
  - Gastrointestinal disorder [Unknown]
  - Hepatic function abnormal [Unknown]
  - Palmar-plantar erythrodysaesthesia syndrome [Unknown]
